FAERS Safety Report 7475060-4 (Version None)
Quarter: 2011Q2

REPORT INFORMATION
  Report Type: 
  Country: None (occurrence: None)
  Receive Date: 20110512
  Receipt Date: 20110330
  Transmission Date: 20111010
  Serious: Yes (Hospitalization, Other)
  Sender: FDA-Public Use
  Company Number: US-US-EMD SERONO, INC.-232717J10USA

PATIENT
  Sex: Female

DRUGS (1)
  1. REBIF [Suspect]
     Indication: MULTIPLE SCLEROSIS
     Route: 058
     Dates: start: 20060523, end: 20091001

REACTIONS (4)
  - ACUTE RESPIRATORY FAILURE [None]
  - PULMONARY HYPERTENSION [None]
  - MEMORY IMPAIRMENT [None]
  - HAEMOGLOBIN DECREASED [None]
